FAERS Safety Report 6479130-9 (Version None)
Quarter: 2009Q4

REPORT INFORMATION
  Report Type: 
  Country: None (occurrence: None)
  Receive Date: 20091207
  Receipt Date: 20091130
  Transmission Date: 20100525
  Serious: Yes (Hospitalization)
  Sender: FDA-Public Use
  Company Number: JP-SANOFI-AVENTIS-F01200900469

PATIENT
  Age: 59 Year
  Sex: Male
  Weight: 68.2 kg

DRUGS (10)
  1. CLOPIDOGREL BISULFATE [Suspect]
     Indication: ACUTE CORONARY SYNDROME
     Dosage: DOSE TEXT: STARTING DOSE
     Route: 048
     Dates: start: 20081003, end: 20081003
  2. CLOPIDOGREL BISULFATE [Suspect]
     Indication: ANGINA UNSTABLE
     Dosage: DOSE TEXT: STARTING DOSE
     Route: 048
     Dates: start: 20081003, end: 20081003
  3. CLOPIDOGREL BISULFATE [Suspect]
     Dosage: DOSE TEXT: MAINTENANCE DOSE
     Route: 048
     Dates: start: 20081004
  4. CLOPIDOGREL BISULFATE [Suspect]
     Dosage: DOSE TEXT: MAINTENANCE DOSE
     Route: 048
     Dates: start: 20081004
  5. ASPIRIN [Concomitant]
     Indication: ANGINA UNSTABLE
     Route: 048
     Dates: start: 20081003
  6. GASTER OD [Concomitant]
     Route: 048
     Dates: start: 20081003
  7. SIGMART [Concomitant]
     Indication: ANGINA UNSTABLE
     Route: 048
     Dates: start: 20081002
  8. NITOROL [Concomitant]
     Indication: ANGINA UNSTABLE
     Route: 048
     Dates: start: 20081002
  9. HERBESSER - SLOW RELEASE [Concomitant]
     Indication: HYPERTENSION
     Route: 048
     Dates: start: 20081002
  10. MAINTATE [Concomitant]
     Indication: ANGINA UNSTABLE
     Route: 048
     Dates: start: 20081006

REACTIONS (1)
  - CORONARY ARTERY RESTENOSIS [None]
